FAERS Safety Report 19086321 (Version 3)
Quarter: 2021Q2

REPORT INFORMATION
  Report Type: Spontaneous
  Country: AU (occurrence: AU)
  Receive Date: 20210402
  Receipt Date: 20210615
  Transmission Date: 20210717
  Serious: Yes (Other)
  Sender: FDA-Public Use
  Company Number: AU-ROCHE-2799726

PATIENT
  Age: 27 Year
  Sex: Male

DRUGS (1)
  1. XOLAIR [Suspect]
     Active Substance: OMALIZUMAB
     Indication: CHRONIC SPONTANEOUS URTICARIA
     Route: 065
     Dates: start: 20160301

REACTIONS (4)
  - Fructose intolerance [Unknown]
  - Inflammatory bowel disease [Unknown]
  - Oral candidiasis [Unknown]
  - Lactose intolerance [Unknown]
